FAERS Safety Report 4405171-9 (Version None)
Quarter: 2004Q3

REPORT INFORMATION
  Report Type: 
  Country: None (occurrence: None)
  Receive Date: 20040722
  Receipt Date: 20040722
  Transmission Date: 20050211
  Serious: Yes (Hospitalization)
  Sender: FDA-Public Use
  Company Number: None

PATIENT
  Age: 65 Year
  Sex: Female
  Weight: 105.5 kg

DRUGS (14)
  1. LIPITOR [Suspect]
     Indication: BLOOD CHOLESTEROL INCREASED
     Dosage: 80 MG PO QHS
     Route: 048
     Dates: start: 20040302
  2. VICODIN [Concomitant]
  3. COUMADIN [Concomitant]
  4. AZITHROMYCIN [Concomitant]
  5. AUGMENTIN '250' [Concomitant]
  6. KLONIPIN [Concomitant]
  7. LASIX [Concomitant]
  8. HYDRARALAZINE [Concomitant]
  9. TOPROL-XL [Concomitant]
  10. SPIRONOLACTONE [Concomitant]
  11. PREDNISONE TAB [Concomitant]
  12. NEURONTIN [Concomitant]
  13. NPH INSULIN [Concomitant]
  14. PRINIVIL [Concomitant]

REACTIONS (4)
  - LETHARGY [None]
  - MENTAL STATUS CHANGES [None]
  - RENAL FAILURE ACUTE [None]
  - RHABDOMYOLYSIS [None]
